FAERS Safety Report 19602172 (Version 1)
Quarter: 2021Q3

REPORT INFORMATION
  Report Type: Report from Study
  Country: US (occurrence: US)
  Receive Date: 20210722
  Receipt Date: 20210722
  Transmission Date: 20211014
  Serious: Yes (Hospitalization, Other)
  Sender: FDA-Public Use
  Company Number: US-SNT-000166

PATIENT
  Age: 14 Year
  Sex: Male
  Weight: 73 kg

DRUGS (1)
  1. BUPROPION. [Suspect]
     Active Substance: BUPROPION
     Indication: PRODUCT USED FOR UNKNOWN INDICATION
     Dosage: 30 TABLETS
     Route: 048

REACTIONS (12)
  - Suicide attempt [Unknown]
  - Status epilepticus [Unknown]
  - Overdose [Unknown]
  - Confusional state [Unknown]
  - Sedation [Unknown]
  - Mental status changes [Unknown]
  - Autonomic nervous system imbalance [Unknown]
  - Mydriasis [Unknown]
  - Agitation [Unknown]
  - Tremor [Recovered/Resolved]
  - Clonus [Recovered/Resolved]
  - Serotonin syndrome [Recovered/Resolved]
